FAERS Safety Report 23078143 (Version 3)
Quarter: 2024Q1

REPORT INFORMATION
  Report Type: Spontaneous
  Country: US (occurrence: US)
  Receive Date: 20231018
  Receipt Date: 20240202
  Transmission Date: 20240409
  Serious: Yes (Other)
  Sender: FDA-Public Use
  Company Number: US-AUROBINDO-AUR-APL-2023-063291

PATIENT
  Age: 65 Year
  Sex: Female

DRUGS (1)
  1. AZELASTINE HYDROCHLORIDE [Suspect]
     Active Substance: AZELASTINE HYDROCHLORIDE
     Indication: Dyspnoea
     Dosage: 1 DOSAGE FORM, TWO TIMES A DAY
     Route: 045

REACTIONS (4)
  - Device loosening [Unknown]
  - Product dose omission issue [Unknown]
  - Product container issue [Unknown]
  - Product leakage [Unknown]
